FAERS Safety Report 13080812 (Version 1)
Quarter: 2017Q1

REPORT INFORMATION
  Report Type: Report from Study
  Country: CA (occurrence: CA)
  Receive Date: 20170103
  Receipt Date: 20170103
  Transmission Date: 20170428
  Serious: Yes (Other)
  Sender: FDA-Public Use
  Company Number: CA-PFIZER INC-2016605282

PATIENT
  Age: 39 Year
  Sex: Female

DRUGS (10)
  1. CALCIUM [Concomitant]
     Active Substance: CALCIUM
     Dosage: 650 MG, 2X/DAY
  2. PERCOCET /00446701/ [Concomitant]
     Active Substance: ACETAMINOPHEN\OXYCODONE HYDROCHLORIDE\OXYCODONE TEREPHTHALATE
     Dosage: UNK
  3. ATIVAN [Concomitant]
     Active Substance: LORAZEPAM
     Dosage: 1 MG, UNK
  4. SYNTHROID [Concomitant]
     Active Substance: LEVOTHYROXINE SODIUM
     Dosage: 0.1 MG, UNK
  5. CALCIUM CITRATE [Concomitant]
     Active Substance: CALCIUM CITRATE
     Dosage: 400 MG, 3X/DAY
  6. ZOPICLONE [Concomitant]
     Active Substance: ZOPICLONE
     Dosage: 15 MG, 1X/DAY
  7. PANTOLOC [Suspect]
     Active Substance: PANTOPRAZOLE SODIUM
     Indication: GASTROOESOPHAGEAL REFLUX DISEASE
     Dosage: 40 MG, 2X/DAY
     Route: 048
     Dates: start: 201010
  8. ROCALTROL [Concomitant]
     Active Substance: CALCITRIOL
     Dosage: 1.5 MG, 1X/DAY
  9. ENTYVIO [Suspect]
     Active Substance: VEDOLIZUMAB
     Indication: COLITIS ULCERATIVE
     Dosage: 300 MG, UNK
     Route: 042
     Dates: start: 20161206
  10. MAGNESIUM [Concomitant]
     Active Substance: MAGNESIUM
     Dosage: 420 MG, 3X/DAY

REACTIONS (2)
  - Lower respiratory tract infection [Not Recovered/Not Resolved]
  - Oesophageal spasm [Not Recovered/Not Resolved]
